FAERS Safety Report 6316821-4 (Version None)
Quarter: 2009Q3

REPORT INFORMATION
  Report Type: 
  Country: None (occurrence: None)
  Receive Date: 20090820
  Receipt Date: 20090807
  Transmission Date: 20100115
  Serious: Yes (Other)
  Sender: FDA-Public Use
  Company Number: BR-ROCHE-649065

PATIENT
  Sex: Female
  Weight: 53 kg

DRUGS (3)
  1. ROACUTAN [Suspect]
     Indication: ACNE
     Dosage: STRENGTH: 10-20 MG
     Route: 048
     Dates: start: 20090524
  2. ROACUTAN [Suspect]
     Dosage: STRENGTH: 20 MG, BACTH NUMBER: B4478B01
     Route: 048
  3. DIANE 35 [Concomitant]
     Indication: CONTRACEPTION
     Route: 048

REACTIONS (4)
  - BLOOD CHOLESTEROL INCREASED [None]
  - CONJUNCTIVITIS [None]
  - INFLUENZA [None]
  - PNEUMONIA [None]
